FAERS Safety Report 6760356-1 (Version None)
Quarter: 2010Q2

REPORT INFORMATION
  Report Type: 
  Country: None (occurrence: None)
  Receive Date: 20100608
  Receipt Date: 20100517
  Transmission Date: 20101027
  Serious: Yes (Disabling, Other)
  Sender: FDA-Public Use
  Company Number: US-BAYER-200835106NA

PATIENT
  Age: 52 Year
  Sex: Female
  Weight: 50 kg

DRUGS (38)
  1. MAGNEVIST [Suspect]
     Indication: NUCLEAR MAGNETIC RESONANCE IMAGING BRAIN
     Dates: start: 20070801, end: 20070801
  2. OMNISCAN [Suspect]
     Indication: NUCLEAR MAGNETIC RESONANCE IMAGING BRAIN
     Dosage: TOTAL DAILY DOSE: 20 ML
     Dates: start: 20041221, end: 20041221
  3. OMNISCAN [Suspect]
     Dosage: TOTAL DAILY DOSE: 20 ML
     Dates: start: 20050214, end: 20050214
  4. OMNISCAN [Suspect]
     Dosage: TOTAL DAILY DOSE: 20 ML
     Dates: start: 20060619, end: 20060619
  5. OMNISCAN [Suspect]
     Dates: start: 20050215, end: 20050215
  6. OPTIMARK [Suspect]
     Indication: NUCLEAR MAGNETIC RESONANCE IMAGING
  7. INSULIN [Concomitant]
  8. PREDNISONE [Concomitant]
     Indication: PROPHYLAXIS AGAINST TRANSPLANT REJECTION
     Dosage: TOTAL DAILY DOSE: 5 MG
     Dates: start: 20071201
  9. EPOGEN [Concomitant]
     Indication: PROPHYLAXIS AGAINST TRANSPLANT REJECTION
  10. IRON INJECTION [Concomitant]
  11. CYCLOSPORINE [Concomitant]
     Indication: PROPHYLAXIS AGAINST TRANSPLANT REJECTION
  12. PREDNISONE [Concomitant]
  13. AMIODARONE HYDROCHLORIDE [Concomitant]
  14. CARNITOR [Concomitant]
     Dates: start: 20050601
  15. RENAGEL [Concomitant]
     Dosage: DOSE: 5 TABS
  16. NEURONTIN [Concomitant]
  17. ISOVUE-128 [Concomitant]
     Indication: ANGIOGRAM
     Dosage: TOTAL DAILY DOSE: 45 MOL
     Dates: start: 20041022, end: 20041022
  18. HYDROCODONE [Concomitant]
  19. NPH INSULIN [Concomitant]
  20. CORDARONE [Concomitant]
  21. FLORINEF [Concomitant]
  22. NEORAL [Concomitant]
  23. NOVOLOG [Concomitant]
  24. PROTONIX [Concomitant]
  25. PREDNISONE [Concomitant]
  26. DARVOCET [Concomitant]
  27. ZOFRAN [Concomitant]
  28. MORPHINE [Concomitant]
  29. NORCO [Concomitant]
  30. METOPROLOL TARTRATE [Concomitant]
  31. LANTUS [Concomitant]
  32. NEURONTIN [Concomitant]
  33. LASIX [Concomitant]
  34. EPOGEN [Concomitant]
  35. VENOFER [Concomitant]
  36. HEPARIN [Concomitant]
  37. LOVENOX [Concomitant]
  38. CELLCEPT [Concomitant]

REACTIONS (22)
  - ABDOMINAL DISCOMFORT [None]
  - ANXIETY [None]
  - BACK PAIN [None]
  - CATARACT [None]
  - EMOTIONAL DISTRESS [None]
  - ERYTHEMA [None]
  - FIBROSIS [None]
  - GENERAL PHYSICAL HEALTH DETERIORATION [None]
  - INJURY [None]
  - JOINT CONTRACTURE [None]
  - JOINT RANGE OF MOTION DECREASED [None]
  - MUSCULAR WEAKNESS [None]
  - MUSCULOSKELETAL CHEST PAIN [None]
  - NEPHROGENIC SYSTEMIC FIBROSIS [None]
  - PAIN [None]
  - RASH PAPULAR [None]
  - SCAR [None]
  - SKIN HYPERPIGMENTATION [None]
  - SKIN HYPERTROPHY [None]
  - SKIN INDURATION [None]
  - SKIN SWELLING [None]
  - SKIN TIGHTNESS [None]
